FAERS Safety Report 19683591 (Version 1)
Quarter: 2021Q3

REPORT INFORMATION
  Report Type: Spontaneous
  Country: US (occurrence: US)
  Receive Date: 20210811
  Receipt Date: 20210811
  Transmission Date: 20211014
  Serious: No
  Sender: FDA-Public Use
  Company Number: US-AUROBINDO-AUR-APL-2021-001817

PATIENT
  Age: 63 Year
  Sex: Male
  Weight: 64.41 kg

DRUGS (3)
  1. AZITHROMYCIN ANHYDROUS. [Suspect]
     Active Substance: AZITHROMYCIN ANHYDROUS
     Indication: COVID-19
     Dosage: UNK
     Route: 065
  2. COVID?19 VACCINE [Concomitant]
     Indication: COVID-19
     Dosage: FIRST DOSE BY INJECTION
     Route: 065
     Dates: start: 20201221
  3. ACETAMINOPHEN. [Suspect]
     Active Substance: ACETAMINOPHEN
     Indication: COVID-19
     Dosage: 500 MILLIGRAM, 6 TO 8 DAILY
     Route: 048

REACTIONS (2)
  - Self-medication [Unknown]
  - Off label use [Unknown]
